FAERS Safety Report 13344557 (Version 2)
Quarter: 2018Q2

REPORT INFORMATION
  Report Type: Report from Study
  Country: US (occurrence: US)
  Receive Date: 20170317
  Receipt Date: 20180423
  Transmission Date: 20180711
  Serious: Yes (Other)
  Sender: FDA-Public Use
  Company Number: PHEH2017US007055

PATIENT
  Sex: Female

DRUGS (1)
  1. COSENTYX [Suspect]
     Active Substance: SECUKINUMAB
     Indication: PRODUCT USED FOR UNKNOWN INDICATION
     Dosage: UNK
     Route: 065
     Dates: start: 201604

REACTIONS (10)
  - Malaise [Unknown]
  - Cardiac failure [Recovering/Resolving]
  - Foot deformity [Unknown]
  - Nasopharyngitis [Unknown]
  - Pyrexia [Unknown]
  - Finger deformity [Unknown]
  - Sinusitis [Unknown]
  - Peripheral swelling [Unknown]
  - Pain [Unknown]
  - Condition aggravated [Unknown]
